FAERS Safety Report 5321998-3 (Version None)
Quarter: 2007Q2

REPORT INFORMATION
  Report Type: 
  Country: None (occurrence: None)
  Receive Date: 20070511
  Receipt Date: 20070502
  Transmission Date: 20071010
  Serious: Yes (Other)
  Sender: FDA-Public Use
  Company Number: PHBS2007BR03705

PATIENT
  Age: 61 Year
  Sex: Female
  Weight: 70 kg

DRUGS (5)
  1. HIGROTON [Suspect]
     Indication: ARRHYTHMIA
     Dosage: 50 MG, UNK
     Route: 048
  2. POTASSIUM CHLORIDE [Suspect]
  3. ATENOLOL [Concomitant]
     Indication: HYPERTENSION
     Dosage: 100 MG, QD
     Route: 048
  4. SIMVACOR [Concomitant]
     Indication: BLOOD CHOLESTEROL INCREASED
     Dosage: 1 DF, QD
     Route: 048
  5. SLOW-K [Suspect]
     Indication: BLOOD POTASSIUM DECREASED
     Dosage: 2 DF/DAY
     Route: 048

REACTIONS (6)
  - BLOOD POTASSIUM DECREASED [None]
  - EXTRASYSTOLES [None]
  - GASTRIC DISORDER [None]
  - INTESTINAL ADENOCARCINOMA [None]
  - INTESTINAL OPERATION [None]
  - RETCHING [None]
